FAERS Safety Report 5685339-4 (Version None)
Quarter: 2008Q1

REPORT INFORMATION
  Report Type: 
  Country: None (occurrence: None)
  Receive Date: 20080328
  Receipt Date: 20080325
  Transmission Date: 20080703
  Serious: Yes (Death, Hospitalization)
  Sender: FDA-Public Use
  Company Number: SE-ABBOTT-08P-150-0444434-00

PATIENT
  Age: 66 Year
  Sex: Male

DRUGS (1)
  1. ZEMPLAR [Suspect]
     Indication: CONGENITAL CYSTIC KIDNEY DISEASE
     Dosage: 5 MCG/ML
     Route: 050

REACTIONS (18)
  - ARTERIOVENOUS FISTULA SITE INFECTION [None]
  - ASPIRATION PLEURAL CAVITY ABNORMAL [None]
  - AZOTAEMIA [None]
  - BLADDER DISORDER [None]
  - COMPUTERISED TOMOGRAM ABDOMEN ABNORMAL [None]
  - COMPUTERISED TOMOGRAM THORAX ABNORMAL [None]
  - CONFUSIONAL STATE [None]
  - CONGENITAL CYSTIC KIDNEY DISEASE [None]
  - DEPRESSED LEVEL OF CONSCIOUSNESS [None]
  - EPILEPSY [None]
  - ESCHERICHIA INFECTION [None]
  - FALL [None]
  - GENERAL PHYSICAL HEALTH DETERIORATION [None]
  - HEAD INJURY [None]
  - HYPOVENTILATION [None]
  - PYREXIA [None]
  - SEPSIS [None]
  - STAPHYLOCOCCAL INFECTION [None]
